FAERS Safety Report 16862815 (Version 1)
Quarter: 2019Q3

REPORT INFORMATION
  Report Type: Spontaneous
  Country: US (occurrence: US)
  Receive Date: 20190806
  Receipt Date: 20190806
  Transmission Date: 20191005
  Serious: Yes (Hospitalization)
  Sender: FDA-Public Use
  Company Number: None

PATIENT
  Age: 44 Year
  Sex: Female

DRUGS (11)
  1. HYDROCO/APAP [Concomitant]
     Active Substance: ACETAMINOPHEN\HYDROCODONE
  2. CAPACITABINE 500MG TEVA PHARMACUETICALS [Suspect]
     Active Substance: CAPECITABINE
     Indication: NEOPLASM MALIGNANT
     Route: 048
     Dates: start: 20190501
  3. FOLIC ACID. [Concomitant]
     Active Substance: FOLIC ACID
  4. VIT D [Concomitant]
     Active Substance: VITAMIN D NOS
  5. ZOFRAN [Concomitant]
     Active Substance: ONDANSETRON HYDROCHLORIDE
  6. ALBUTERNOL [Concomitant]
  7. DEXAMETHASONE. [Concomitant]
     Active Substance: DEXAMETHASONE
  8. LORAZEPAM. [Concomitant]
     Active Substance: LORAZEPAM
  9. VITAMIN D3 [Concomitant]
     Active Substance: CHOLECALCIFEROL
  10. COMPAZINE [Concomitant]
     Active Substance: PROCHLORPERAZINE MALEATE
  11. LIDO/PRILOCN [Concomitant]

REACTIONS (2)
  - Surgery [None]
  - Therapy cessation [None]
